FAERS Safety Report 16845977 (Version 2)
Quarter: 2019Q4

REPORT INFORMATION
  Report Type: Spontaneous
  Country: US (occurrence: US)
  Receive Date: 20190924
  Receipt Date: 20191004
  Transmission Date: 20200122
  Serious: Yes (Other)
  Sender: FDA-Public Use
  Company Number: US-009507513-1909USA006588

PATIENT
  Age: 22 Year
  Sex: Female
  Weight: 94.79 kg

DRUGS (1)
  1. NEXPLANON [Suspect]
     Active Substance: ETONOGESTREL
     Indication: CONTRACEPTION
     Dosage: 1 IMPLANT, EVERY 3 YEARS
     Dates: start: 2016

REACTIONS (5)
  - Device dislocation [Not Recovered/Not Resolved]
  - Device deployment issue [Not Recovered/Not Resolved]
  - Incorrect product administration duration [Unknown]
  - Complication of device removal [Not Recovered/Not Resolved]
  - Complication associated with device [Not Recovered/Not Resolved]

NARRATIVE: CASE EVENT DATE: 2016
